FAERS Safety Report 18692813 (Version 1)
Quarter: 2021Q1

REPORT INFORMATION
  Report Type: Spontaneous
  Country: NL (occurrence: NL)
  Receive Date: 20210104
  Receipt Date: 20210104
  Transmission Date: 20210419
  Serious: Yes (Other)
  Sender: FDA-Public Use
  Company Number: NL-AUROBINDO-AUR-APL-2020-064117

PATIENT
  Age: 92 Year
  Sex: Female
  Weight: 45 kg

DRUGS (2)
  1. DEXAMETHASON 0.5 MG TABLETS [Suspect]
     Active Substance: DEXAMETHASONE
     Indication: LUNG NEOPLASM MALIGNANT
     Dosage: 2 MILLIGRAM, ONCE A DAY
     Route: 065
     Dates: start: 20201111
  2. MACROGOL [Concomitant]
     Active Substance: POLYETHYLENE GLYCOLS
     Indication: PRODUCT USED FOR UNKNOWN INDICATION
     Dosage: 1 DOSAGE FORM (POWDER FOR DRINK)
     Route: 065

REACTIONS (2)
  - Hallucination, visual [Not Recovered/Not Resolved]
  - Hallucination, auditory [Not Recovered/Not Resolved]

NARRATIVE: CASE EVENT DATE: 20201207
